FAERS Safety Report 7672626-3 (Version None)
Quarter: 2011Q3

REPORT INFORMATION
  Report Type: 
  Country: None (occurrence: None)
  Receive Date: 20110809
  Receipt Date: 20110729
  Transmission Date: 20111222
  Serious: Yes (Hospitalization)
  Sender: FDA-Public Use
  Company Number: HU-JNJFOC-20100801932

PATIENT
  Age: 51 Year
  Sex: Female
  Weight: 57 kg

DRUGS (6)
  1. ARCOXIA [Concomitant]
     Indication: RHEUMATOID ARTHRITIS
     Route: 048
     Dates: start: 20100512
  2. LANSOPRAZOLE [Concomitant]
     Indication: GASTROOESOPHAGEAL REFLUX DISEASE
     Route: 048
     Dates: start: 20090101
  3. LOKREN [Concomitant]
     Indication: HYPERTENSION
     Route: 048
     Dates: start: 20060101
  4. MEDROL [Concomitant]
     Indication: RHEUMATOID ARTHRITIS
     Route: 048
     Dates: start: 20100330
  5. GOLIMUMAB [Suspect]
     Indication: RHEUMATOID ARTHRITIS
     Route: 058
     Dates: start: 20100701
  6. NORMODIPINE [Concomitant]
     Indication: HYPERTENSION
     Route: 048
     Dates: start: 20000101

REACTIONS (1)
  - PNEUMONIA [None]
